FAERS Safety Report 10880477 (Version 1)
Quarter: 2015Q1

REPORT INFORMATION
  Report Type: Spontaneous
  Country: FR (occurrence: FR)
  Receive Date: 20150303
  Receipt Date: 20150303
  Transmission Date: 20150721
  Serious: Yes (Hospitalization)
  Sender: FDA-Public Use
  Company Number: FR-ASTRAZENECA-2015SE18407

PATIENT
  Age: 3201 Week
  Sex: Male

DRUGS (8)
  1. BRILIQUE [Suspect]
     Active Substance: TICAGRELOR
     Route: 048
     Dates: start: 20150128, end: 20150129
  2. KARDEGIC [Concomitant]
     Active Substance: ASPIRIN LYSINE
     Route: 048
     Dates: start: 20150128, end: 20150129
  3. INEXIUM [Concomitant]
     Active Substance: ESOMEPRAZOLE
     Route: 048
  4. CARAFATE [Concomitant]
     Active Substance: SUCRALFATE
     Route: 048
  5. REOPRO [Suspect]
     Active Substance: ABCIXIMAB
     Route: 040
     Dates: start: 20150128, end: 20150128
  6. REOPRO [Suspect]
     Active Substance: ABCIXIMAB
     Route: 041
     Dates: start: 20150128, end: 20150129
  7. HEPARINE CHOAY [Concomitant]
     Active Substance: HEPARIN SODIUM
     Route: 042
     Dates: start: 20150128, end: 20150129
  8. SPASFON [Concomitant]
     Active Substance: PHLOROGLUCINOL
     Route: 048

REACTIONS (1)
  - Thrombocytopenia [Recovered/Resolved]

NARRATIVE: CASE EVENT DATE: 20150129
